FAERS Safety Report 14254816 (Version 1)
Quarter: 2017Q4

REPORT INFORMATION
  Report Type: Spontaneous
  Country: US (occurrence: None)
  Receive Date: 20171205
  Receipt Date: 20171205
  Transmission Date: 20180321
  Serious: No
  Sender: FDA-Public Use
  Company Number: None

PATIENT
  Age: 77 Year
  Sex: Male

DRUGS (1)
  1. FUOSEMIDE [Suspect]
     Active Substance: FUROSEMIDE

REACTIONS (4)
  - Micturition urgency [None]
  - Rash [None]
  - Constipation [None]
  - Sensory disturbance [None]

NARRATIVE: CASE EVENT DATE: 20171205
